FAERS Safety Report 4366000-5 (Version None)
Quarter: 2004Q2

REPORT INFORMATION
  Report Type: 
  Country: None (occurrence: None)
  Receive Date: 20040526
  Receipt Date: 20040526
  Transmission Date: 20050107
  Serious: No
  Sender: FDA-Public Use
  Company Number: None

PATIENT
  Sex: Female
  Weight: 62.1428 kg

DRUGS (2)
  1. INTERFERON ONE MILLION UNITS [Suspect]
     Indication: HEPATITIS C
     Dosage: 300,000 THREE X A SUBCUTANEOUS
     Route: 058
     Dates: start: 19980101, end: 19980801
  2. RIBAVIRIN [Suspect]
     Indication: HEPATITIS C
     Dosage: ORAL
     Route: 048
     Dates: start: 19980101, end: 19980801

REACTIONS (3)
  - AUTOIMMUNE HEPATITIS [None]
  - CUSHING'S SYNDROME [None]
  - MEDICATION ERROR [None]
